FAERS Safety Report 20233584 (Version 2)
Quarter: 2022Q3

REPORT INFORMATION
  Report Type: Report from Study
  Country: US (occurrence: US)
  Receive Date: 20211227
  Receipt Date: 20220707
  Transmission Date: 20221026
  Serious: Yes (Hospitalization, Other)
  Sender: FDA-Public Use
  Company Number: US-BRISTOL-MYERS SQUIBB COMPANY-BMS-2021-123182

PATIENT
  Sex: Female
  Weight: 82 kg

DRUGS (53)
  1. LULIZUMAB PEGOL [Suspect]
     Active Substance: LULIZUMAB PEGOL
     Indication: Renal transplant
     Dosage: 25 MILLIGRAM
     Route: 058
     Dates: start: 20210529, end: 20210529
  2. LULIZUMAB PEGOL [Suspect]
     Active Substance: LULIZUMAB PEGOL
     Dosage: 12.5 MILLIGRAM
     Route: 058
     Dates: start: 20210604, end: 20210604
  3. LULIZUMAB PEGOL [Suspect]
     Active Substance: LULIZUMAB PEGOL
     Dosage: 12.5 MILLIGRAM
     Route: 058
     Dates: start: 20210611, end: 20210611
  4. LULIZUMAB PEGOL [Suspect]
     Active Substance: LULIZUMAB PEGOL
     Dosage: 12.5 MILLIGRAM
     Route: 058
     Dates: start: 20210616, end: 20210616
  5. LULIZUMAB PEGOL [Suspect]
     Active Substance: LULIZUMAB PEGOL
     Dosage: 12.5 MILLIGRAM
     Route: 058
     Dates: start: 20210624, end: 20210624
  6. LULIZUMAB PEGOL [Suspect]
     Active Substance: LULIZUMAB PEGOL
     Dosage: 12.5 MILLIGRAM
     Route: 058
     Dates: start: 20210630, end: 20210630
  7. LULIZUMAB PEGOL [Suspect]
     Active Substance: LULIZUMAB PEGOL
     Dosage: 12.5 MILLIGRAM
     Route: 058
     Dates: start: 20210708, end: 20210708
  8. LULIZUMAB PEGOL [Suspect]
     Active Substance: LULIZUMAB PEGOL
     Dosage: 12.5 MILLIGRAM
     Route: 058
     Dates: start: 20210716, end: 20210716
  9. LULIZUMAB PEGOL [Suspect]
     Active Substance: LULIZUMAB PEGOL
     Dosage: 12.5 MILLIGRAM
     Route: 058
     Dates: start: 20210721, end: 20210721
  10. LULIZUMAB PEGOL [Suspect]
     Active Substance: LULIZUMAB PEGOL
     Dosage: 12.5 MILLIGRAM
     Route: 058
     Dates: start: 20210730, end: 20210730
  11. LULIZUMAB PEGOL [Suspect]
     Active Substance: LULIZUMAB PEGOL
     Dosage: 12.5 MILLIGRAM
     Route: 058
     Dates: start: 20210806, end: 20210806
  12. LULIZUMAB PEGOL [Suspect]
     Active Substance: LULIZUMAB PEGOL
     Dosage: 12.5 MILLIGRAM
     Route: 058
     Dates: start: 20210813, end: 20210813
  13. BELATACEPT [Suspect]
     Active Substance: BELATACEPT
     Indication: Renal transplant
     Dosage: 462.5 MILLIGRAM
     Route: 042
     Dates: start: 20210819, end: 20210819
  14. PREDNISONE [Suspect]
     Active Substance: PREDNISONE
     Indication: Renal transplant
     Dosage: 5 MILLIGRAM
     Route: 048
     Dates: start: 20210531
  15. METHYLPREDNISOLONE [Suspect]
     Active Substance: METHYLPREDNISOLONE
     Indication: Renal transplant
     Dosage: 500 MILLIGRAM, QD
     Route: 042
     Dates: start: 20210528, end: 20210528
  16. METHYLPREDNISOLONE [Suspect]
     Active Substance: METHYLPREDNISOLONE
     Dosage: 250 MILLIGRAM, QD
     Route: 042
     Dates: start: 20210529, end: 20210529
  17. METHYLPREDNISOLONE [Suspect]
     Active Substance: METHYLPREDNISOLONE
     Dosage: 125 MILLIGRAM, QD
     Route: 042
     Dates: start: 20210530, end: 20210530
  18. METHYLPREDNISOLONE [Suspect]
     Active Substance: METHYLPREDNISOLONE
     Dosage: 125 MILLIGRAM, QD
     Route: 042
     Dates: start: 20210924, end: 20210924
  19. THYMOCYTE IMMUNE GLOBULIN NOS [Suspect]
     Active Substance: THYMOCYTE IMMUNE GLOBULIN NOS
     Indication: Renal transplant
     Dosage: 75 MILLIGRAM, QD
     Route: 042
     Dates: start: 20210528, end: 20210531
  20. TOCILIZUMAB [Suspect]
     Active Substance: TOCILIZUMAB
     Indication: Renal transplant
     Dosage: 758.4 MILLIGRAM, QD
     Route: 042
     Dates: start: 20210530, end: 20210530
  21. TOCILIZUMAB [Suspect]
     Active Substance: TOCILIZUMAB
     Dosage: 162 MILLIGRAM
     Route: 058
     Dates: start: 20210611, end: 20210611
  22. TOCILIZUMAB [Suspect]
     Active Substance: TOCILIZUMAB
     Dosage: 162 MILLIGRAM
     Route: 058
     Dates: start: 20210624, end: 20210624
  23. TOCILIZUMAB [Suspect]
     Active Substance: TOCILIZUMAB
     Dosage: 162 MILLIGRAM
     Route: 042
     Dates: start: 20210721, end: 20210721
  24. TOCILIZUMAB [Suspect]
     Active Substance: TOCILIZUMAB
     Dosage: 162 MILLIGRAM
     Route: 058
     Dates: start: 20210806, end: 20210806
  25. EVEROLIMUS [Suspect]
     Active Substance: EVEROLIMUS
     Indication: Renal transplant
     Dosage: 0.75 MILLIGRAM, BID
     Route: 065
     Dates: start: 20210611, end: 20210616
  26. EVEROLIMUS [Suspect]
     Active Substance: EVEROLIMUS
     Dosage: 1.5 MILLIGRAM, BID
     Route: 065
     Dates: start: 20210616, end: 20210621
  27. EVEROLIMUS [Suspect]
     Active Substance: EVEROLIMUS
     Dosage: 3 MILLIGRAM, BID
     Route: 065
     Dates: start: 20210621, end: 20210708
  28. EVEROLIMUS [Suspect]
     Active Substance: EVEROLIMUS
     Dosage: 2.25 MILLIGRAM, BID
     Route: 065
     Dates: start: 20210709, end: 20210716
  29. EVEROLIMUS [Suspect]
     Active Substance: EVEROLIMUS
     Dosage: 1.5 MILLIGRAM, BID
     Route: 065
     Dates: start: 20210717, end: 20210730
  30. MYCOPHENOLATE MOFETIL [Suspect]
     Active Substance: MYCOPHENOLATE MOFETIL
     Indication: Renal transplant
     Dosage: 1000 MILLIGRAM, BID
     Route: 065
     Dates: start: 20210529, end: 20210624
  31. MYCOPHENOLATE MOFETIL [Suspect]
     Active Substance: MYCOPHENOLATE MOFETIL
     Dosage: 500 MILLIGRAM, BID
     Route: 065
     Dates: start: 20210625, end: 20210625
  32. MYCOPHENOLATE MOFETIL [Suspect]
     Active Substance: MYCOPHENOLATE MOFETIL
     Dosage: 500 MILLIGRAM, BID
     Route: 065
     Dates: start: 20210731, end: 20210810
  33. MYCOPHENOLATE MOFETIL [Suspect]
     Active Substance: MYCOPHENOLATE MOFETIL
     Dosage: 750 MILLIGRAM, BID
     Route: 065
     Dates: start: 20210811, end: 20210813
  34. MYCOPHENOLATE MOFETIL [Suspect]
     Active Substance: MYCOPHENOLATE MOFETIL
     Dosage: 500 MILLIGRAM, BID
     Route: 065
     Dates: start: 20210814, end: 20210819
  35. MYCOPHENOLATE MOFETIL [Suspect]
     Active Substance: MYCOPHENOLATE MOFETIL
     Dosage: 250 MILLIGRAM, BID
     Route: 065
     Dates: start: 20210820, end: 20210820
  36. MYCOPHENOLATE MOFETIL [Suspect]
     Active Substance: MYCOPHENOLATE MOFETIL
     Dosage: 500 MILLIGRAM, QD
     Route: 065
     Dates: start: 20210821, end: 20210830
  37. MYCOPHENOLATE MOFETIL [Suspect]
     Active Substance: MYCOPHENOLATE MOFETIL
     Dosage: 250 MILLIGRAM, QD
     Route: 065
     Dates: start: 20210821, end: 20210830
  38. MYCOPHENOLATE MOFETIL [Suspect]
     Active Substance: MYCOPHENOLATE MOFETIL
     Dosage: 250 MILLIGRAM, BID
     Route: 065
     Dates: start: 20210831, end: 20210903
  39. MYCOPHENOLATE MOFETIL [Suspect]
     Active Substance: MYCOPHENOLATE MOFETIL
     Dosage: 250 MILLIGRAM, QD
     Route: 065
     Dates: start: 20210903, end: 20210908
  40. SULFAMETHOXAZOLE AND TRIMETHOPRIM [Concomitant]
     Active Substance: SULFAMETHOXAZOLE\TRIMETHOPRIM
     Indication: Infection prophylaxis
     Dosage: UNK, QD
     Route: 048
     Dates: start: 20210528, end: 20210708
  41. SULFAMETHOXAZOLE AND TRIMETHOPRIM [Concomitant]
     Active Substance: SULFAMETHOXAZOLE\TRIMETHOPRIM
     Dosage: UNK
     Route: 048
     Dates: start: 20210709
  42. LIPITOR [Concomitant]
     Active Substance: ATORVASTATIN CALCIUM
     Indication: Product used for unknown indication
     Dosage: UNK
     Route: 065
     Dates: start: 20210108
  43. COREG [Concomitant]
     Active Substance: CARVEDILOL
     Indication: Product used for unknown indication
     Dosage: UNK
     Route: 065
     Dates: start: 20210529
  44. BASAGLAR [Concomitant]
     Active Substance: INSULIN GLARGINE
     Indication: Product used for unknown indication
     Dosage: UNK
     Route: 065
     Dates: start: 20201007
  45. HUMALOG [Concomitant]
     Active Substance: INSULIN LISPRO
     Indication: Product used for unknown indication
     Dosage: UNK
     Route: 065
     Dates: start: 20210624
  46. HUMALOG [Concomitant]
     Active Substance: INSULIN LISPRO
     Dosage: UNK
     Route: 065
     Dates: start: 20210608
  47. LANTUS [Concomitant]
     Active Substance: INSULIN GLARGINE
     Indication: Product used for unknown indication
     Dosage: UNK
     Route: 065
     Dates: start: 20201007
  48. TOUJEO [Concomitant]
     Active Substance: INSULIN GLARGINE
     Indication: Product used for unknown indication
     Dosage: UNK
     Route: 065
     Dates: start: 20201007
  49. VALCYTE [Concomitant]
     Active Substance: VALGANCICLOVIR HYDROCHLORIDE
     Indication: Infection prophylaxis
     Dosage: 450 MILLIGRAM, QD
     Route: 048
     Dates: start: 20210528
  50. VERAPAMIL [Concomitant]
     Active Substance: VERAPAMIL HYDROCHLORIDE
     Indication: Product used for unknown indication
     Dosage: UNK
     Route: 065
     Dates: start: 20210202
  51. HEPARIN [Concomitant]
     Active Substance: HEPARIN SODIUM
     Indication: Product used for unknown indication
     Dosage: UNK
     Route: 065
     Dates: start: 20210528
  52. VANCOMYCIN [Concomitant]
     Active Substance: VANCOMYCIN
     Indication: Product used for unknown indication
     Dosage: 125 MILLIGRAM, QID
     Route: 048
     Dates: start: 20211108
  53. MEPRON [Concomitant]
     Active Substance: ATOVAQUONE
     Indication: Product used for unknown indication
     Dosage: 1500 MILLIGRAM, QD
     Route: 065
     Dates: start: 20211018

REACTIONS (3)
  - Acute kidney injury [Recovered/Resolved]
  - Hyperglycaemia [Recovered/Resolved]
  - Abdominal abscess [Recovered/Resolved]

NARRATIVE: CASE EVENT DATE: 20211029
